FAERS Safety Report 4992560-7 (Version None)
Quarter: 2006Q1

REPORT INFORMATION
  Report Type: 
  Country: None (occurrence: None)
  Receive Date: 20060313
  Receipt Date: 20051128
  Transmission Date: 20060701
  Serious: Yes (Other)
  Sender: FDA-Public Use
  Company Number: PHEH2005US13021

PATIENT
  Age: 42 Year
  Sex: Female

DRUGS (4)
  1. TRILEPTAL [Suspect]
     Indication: CONVULSION
  2. LOVASTATIN [Suspect]
     Indication: BLOOD CHOLESTEROL
     Dosage: 40 MG, QD, ORAL
     Route: 048
     Dates: start: 20051012
  3. METFORMIN [Concomitant]
  4. GLIPIZIDE [Concomitant]

REACTIONS (1)
  - CONVULSION [None]
